FAERS Safety Report 15755241 (Version 1)
Quarter: 2018Q4

REPORT INFORMATION
  Report Type: Report from Study
  Country: AU (occurrence: AU)
  Receive Date: 20181224
  Receipt Date: 20181224
  Transmission Date: 20190205
  Serious: Yes (Death, Other)
  Sender: FDA-Public Use
  Company Number: AU-TOLMAR, INC.-2018AU012807

PATIENT

DRUGS (1)
  1. ELIGARD [Suspect]
     Active Substance: LEUPROLIDE ACETATE
     Indication: PROSTATE CANCER
     Dosage: 30 MG, 4 MONTHLY
     Route: 058
     Dates: start: 20180906, end: 20181215

REACTIONS (3)
  - Death [Fatal]
  - Multimorbidity [Unknown]
  - Metastases to bone [Unknown]
